FAERS Safety Report 6583645-2 (Version None)
Quarter: 2010Q1

REPORT INFORMATION
  Report Type: 
  Country: None (occurrence: None)
  Receive Date: 20100213
  Receipt Date: 20100213
  Transmission Date: 20100710
  Serious: Yes (Hospitalization)
  Sender: FDA-Public Use
  Company Number: None

PATIENT
  Age: 62 Year
  Sex: Female
  Weight: 79.2 kg

DRUGS (11)
  1. ABRAXANE [Suspect]
     Indication: HEAD AND NECK CANCER
     Dosage: 40 MG/M2 WEEKLY IV
     Route: 042
     Dates: start: 20100112, end: 20100201
  2. CARBOPLATIN [Suspect]
     Indication: HEAD AND NECK CANCER
     Dosage: AUC 1.5 WEEKLY IV
     Route: 042
     Dates: start: 20100112, end: 20100201
  3. ATIVAN [Concomitant]
  4. REGLAN [Concomitant]
  5. ZANTAC [Concomitant]
  6. ZOFRAN [Concomitant]
  7. FENTANYL [Concomitant]
  8. OXYCODONE HCL [Concomitant]
  9. ALKALOL MOUTH RINSE [Concomitant]
  10. MAALOX/BENADRYL/LIDOCANE MOUTH RINSE [Concomitant]
  11. CITALOPRIM [Concomitant]

REACTIONS (4)
  - ABDOMINAL DISCOMFORT [None]
  - ABDOMINAL DISTENSION [None]
  - NAUSEA [None]
  - VOMITING [None]
